FAERS Safety Report 12141805 (Version 4)
Quarter: 2016Q1

REPORT INFORMATION
  Report Type: Report from Study
  Country: JP (occurrence: JP)
  Receive Date: 20160303
  Receipt Date: 20160328
  Transmission Date: 20160526
  Serious: Yes (Life-Threatening, Hospitalization)
  Sender: FDA-Public Use
  Company Number: JP-DSJP-DSJ-2016-107665

PATIENT

DRUGS (10)
  1. BONALON [Concomitant]
     Active Substance: ALENDRONATE SODIUM
     Dosage: 5MG/DAY
     Route: 048
     Dates: start: 20160226
  2. EDOXABAN [Suspect]
     Active Substance: EDOXABAN TOSYLATE
     Indication: ATRIAL FIBRILLATION
     Dosage: 30 MG, QD
     Route: 048
     Dates: start: 20151024, end: 20160212
  3. AMIODARONE HYDROCHLORIDE. [Concomitant]
     Active Substance: AMIODARONE HYDROCHLORIDE
     Dosage: 100MG/DAY
     Route: 048
     Dates: end: 20160212
  4. ZYLORIC [Concomitant]
     Active Substance: ALLOPURINOL
     Dosage: 200MG/DAY
     Route: 048
  5. CLARITIN [Concomitant]
     Active Substance: LORATADINE
     Dosage: 10MG/DAY
     Route: 048
  6. PARIET [Concomitant]
     Active Substance: RABEPRAZOLE SODIUM
     Dosage: 10MG/DAY
     Route: 048
     Dates: start: 20160223
  7. XARELTO [Concomitant]
     Active Substance: RIVAROXABAN
     Dosage: 10MG/DAY
     Route: 048
     Dates: start: 20160222
  8. THYRADIN S [Concomitant]
     Active Substance: LEVOTHYROXINE SODIUM
     Dosage: 50UG/DAY
     Route: 048
  9. XARELTO [Concomitant]
     Active Substance: RIVAROXABAN
     Dosage: 10MG/DAY
     Route: 048
     Dates: end: 20151023
  10. PRAZAXA [Concomitant]
     Active Substance: DABIGATRAN ETEXILATE MESYLATE
     Dosage: 220MG/DAY
     Route: 048
     Dates: start: 20160212, end: 20160219

REACTIONS (2)
  - Hypoxia [Recovered/Resolved]
  - Interstitial lung disease [Recovered/Resolved]

NARRATIVE: CASE EVENT DATE: 20160212
